FAERS Safety Report 5032113-8 (Version None)
Quarter: 2006Q2

REPORT INFORMATION
  Report Type: 
  Country: None (occurrence: None)
  Receive Date: 20060619
  Receipt Date: 20060608
  Transmission Date: 20061013
  Serious: Yes (Other)
  Sender: FDA-Public Use
  Company Number: 145798USA

PATIENT
  Sex: Female
  Weight: 68.0396 kg

DRUGS (1)
  1. COPAXONE [Suspect]
     Indication: MULTIPLE SCLEROSIS

REACTIONS (5)
  - HAEMATOCRIT DECREASED [None]
  - INJURY [None]
  - POST PROCEDURAL HAEMORRHAGE [None]
  - SKIN HAEMORRHAGE [None]
  - TRACHEOSTOMY [None]
